FAERS Safety Report 7621298-2 (Version None)
Quarter: 2011Q3

REPORT INFORMATION
  Report Type: 
  Country: None (occurrence: None)
  Receive Date: 20110719
  Receipt Date: 20110711
  Transmission Date: 20111222
  Serious: Yes (Hospitalization)
  Sender: FDA-Public Use
  Company Number: US-B.I. PHARMACEUTICALS,INC./RIDGEFIELD-2011-BP-17351BP

PATIENT
  Age: 75 Year
  Sex: Female

DRUGS (6)
  1. MOBIC [Suspect]
     Indication: OSTEOARTHRITIS
     Dosage: 15 MG
     Route: 048
     Dates: start: 20020101
  2. ATACAND [Concomitant]
     Dosage: 32 MG
  3. LIPITOR [Concomitant]
     Dosage: 20 MG
  4. LOTREL [Concomitant]
  5. PAXIL [Concomitant]
     Dosage: 15 MG
  6. TOPROL-XL [Concomitant]
     Dosage: 25 MG

REACTIONS (1)
  - OSTEOARTHRITIS [None]
